FAERS Safety Report 16332601 (Version 1)
Quarter: 2019Q2

REPORT INFORMATION
  Report Type: Spontaneous
  Country: US (occurrence: US)
  Receive Date: 20190520
  Receipt Date: 20190520
  Transmission Date: 20190711
  Serious: No
  Sender: FDA-Public Use
  Company Number: US-PFIZER INC-2018054716

PATIENT
  Age: 63 Year
  Sex: Female
  Weight: 68.4 kg

DRUGS (7)
  1. FRAGMIN [Suspect]
     Active Substance: DALTEPARIN SODIUM
     Dosage: 15000 IU, DAILY(15,000 IU PER .6 ML ONE INJECTION DAILY)
     Route: 058
  2. ENOXAPARIN [Concomitant]
     Active Substance: ENOXAPARIN
     Dosage: UNK
  3. FRAGMIN [Suspect]
     Active Substance: DALTEPARIN SODIUM
     Indication: DEEP VEIN THROMBOSIS
     Dosage: 10000 IU, UNK
     Route: 058
  4. FRAGMIN [Suspect]
     Active Substance: DALTEPARIN SODIUM
     Indication: THROMBOSIS PROPHYLAXIS
     Dosage: UNK, DAILY (15 UNITS 15,000 0.6MG, INJECTION)
     Dates: start: 2012, end: 201711
  5. FRAGMIN [Suspect]
     Active Substance: DALTEPARIN SODIUM
     Indication: CERVIX CARCINOMA
     Dosage: UNK(15,000 ANTI-XA UNIT/ 0.6 ML) (INJECT 0.4ML SQ AM )
     Route: 058
  6. HUMIRA [Concomitant]
     Active Substance: ADALIMUMAB
     Indication: RHEUMATOID ARTHRITIS
     Dosage: 40MG INJECTION ONCE A WEEK
  7. OXYGEN. [Concomitant]
     Active Substance: OXYGEN
     Dosage: UNK

REACTIONS (2)
  - Memory impairment [Unknown]
  - Intentional product misuse [Unknown]

NARRATIVE: CASE EVENT DATE: 2019
